FAERS Safety Report 25263665 (Version 2)
Quarter: 2025Q2

REPORT INFORMATION
  Report Type: Spontaneous
  Country: GR (occurrence: GR)
  Receive Date: 20250502
  Receipt Date: 20250506
  Transmission Date: 20250716
  Serious: Yes (Other)
  Sender: PFIZER
  Company Number: GR-PFIZER INC-202500091032

PATIENT
  Age: 65 Year
  Sex: Female

DRUGS (1)
  1. METHOTREXATE SODIUM [Suspect]
     Active Substance: METHOTREXATE SODIUM
     Indication: Peripheral spondyloarthritis
     Dosage: 20 MG, WEEKLY
     Route: 058

REACTIONS (3)
  - Iridocyclitis [Unknown]
  - Off label use [Unknown]
  - Off label use [Unknown]
